FAERS Safety Report 4808530-5 (Version None)
Quarter: 2005Q4

REPORT INFORMATION
  Report Type: 
  Country: None (occurrence: None)
  Receive Date: 20051025
  Receipt Date: 20051007
  Transmission Date: 20060501
  Serious: Yes (Other)
  Sender: FDA-Public Use
  Company Number: PHNU2005DE03415

PATIENT
  Sex: Male

DRUGS (2)
  1. DIOVAN HCT [Suspect]
     Dosage: UNK, UNK
     Dates: start: 19981201, end: 20050401
  2. DIBLOCIN [Concomitant]

REACTIONS (3)
  - ATRIAL FLUTTER [None]
  - BLOOD PRESSURE FLUCTUATION [None]
  - TACHYARRHYTHMIA [None]
